FAERS Safety Report 4652990-X (Version None)
Quarter: 2005Q2

REPORT INFORMATION
  Report Type: 
  Country: None (occurrence: None)
  Receive Date: 20050503
  Receipt Date: 20050427
  Transmission Date: 20051028
  Serious: Yes (Disabling, Other)
  Sender: FDA-Public Use
  Company Number: USA-2005-0019978

PATIENT
  Age: 84 Year
  Sex: Female

DRUGS (1)
  1. OXYCONTIN [Suspect]
     Dosage: 10 MG Q12H

REACTIONS (2)
  - HIP FRACTURE [None]
  - MEMORY IMPAIRMENT [None]
